FAERS Safety Report 6511963-2 (Version None)
Quarter: 2009Q4

REPORT INFORMATION
  Report Type: 
  Country: None (occurrence: None)
  Receive Date: 20091222
  Receipt Date: 20090618
  Transmission Date: 20100525
  Serious: No
  Sender: FDA-Public Use
  Company Number: US-ASTRAZENECA-2009UW15983

PATIENT
  Age: 738 Month
  Sex: Female
  Weight: 72.6 kg

DRUGS (1)
  1. CRESTOR [Suspect]
     Route: 048
     Dates: start: 20081220, end: 20090301

REACTIONS (1)
  - ARTHRITIS [None]
